FAERS Safety Report 23897722 (Version 1)
Quarter: 2024Q2

REPORT INFORMATION
  Report Type: Spontaneous
  Country: FR (occurrence: FR)
  Receive Date: 20240524
  Receipt Date: 20240524
  Transmission Date: 20240716
  Serious: Yes (Life-Threatening, Hospitalization)
  Sender: FDA-Public Use
  Company Number: None

PATIENT
  Age: 54 Year
  Sex: Male
  Weight: 59 kg

DRUGS (3)
  1. CARBOPLATIN [Suspect]
     Active Substance: CARBOPLATIN
     Indication: Bronchial carcinoma
     Dosage: 460 MILLIGRAM, 1 TOTAL
     Route: 042
     Dates: start: 20240216, end: 20240216
  2. KEYTRUDA [Suspect]
     Active Substance: PEMBROLIZUMAB
     Indication: Bronchial carcinoma
     Dosage: 200 MILLIGRAM, 1 TOTAL
     Route: 042
     Dates: start: 20240216, end: 20240216
  3. ALIMTA [Suspect]
     Active Substance: PEMETREXED DISODIUM
     Indication: Bronchial carcinoma
     Dosage: 625 MILLIGRAM, 1 TOTAL
     Route: 042
     Dates: start: 20240216, end: 20240216

REACTIONS (2)
  - Circulatory collapse [Recovered/Resolved]
  - Encephalitis [Recovering/Resolving]

NARRATIVE: CASE EVENT DATE: 20240316
